FAERS Safety Report 25920759 (Version 1)
Quarter: 2025Q4

REPORT INFORMATION
  Report Type: Spontaneous
  Country: US (occurrence: US)
  Receive Date: 20251014
  Receipt Date: 20251014
  Transmission Date: 20260119
  Serious: No
  Sender: BAYER HEALTHCARE LLC
  Company Number: US-BAYER-2025A134752

PATIENT
  Age: 91 Year
  Sex: Female

DRUGS (2)
  1. ASTEPRO [Suspect]
     Active Substance: AZELASTINE HYDROCHLORIDE
     Dosage: UNK
     Dates: start: 20250810, end: 20250810
  2. ASTEPRO ALLERGY [Suspect]
     Active Substance: AZELASTINE HYDROCHLORIDE
     Dosage: UNK
     Dates: start: 20250810, end: 20250810

REACTIONS (2)
  - Nasal discomfort [Recovered/Resolved]
  - Therapeutic response unexpected [Unknown]

NARRATIVE: CASE EVENT DATE: 20250810
